FAERS Safety Report 8662527 (Version 2)
Quarter: 2012Q4

REPORT INFORMATION
  Report Type: Spontaneous
  Country: BR (occurrence: None)
  Receive Date: 20120627
  Receipt Date: 20120907
  Transmission Date: 20130627
  Serious: Yes (Other)
  Sender: FDA-Public Use
  Company Number: DSA_58061_2012

PATIENT
  Age: 6 Year
  Sex: Female

DRUGS (2)
  1. ELIDEL [Suspect]
     Indication: DERMATITIS ATOPIC
     Dosage: (15 G BID TOPICAL)
     Route: 061
     Dates: start: 2010
  2. DESONIDE [Concomitant]
     Indication: DERMATITIS ATOPIC
     Dosage: (1 DF BID)

REACTIONS (4)
  - Dermatitis atopic [None]
  - Influenza [None]
  - Blepharitis [None]
  - Skin depigmentation [None]
